FAERS Safety Report 5382128-5 (Version None)
Quarter: 2007Q3

REPORT INFORMATION
  Report Type: 
  Country: None (occurrence: None)
  Receive Date: 20070705
  Receipt Date: 20070619
  Transmission Date: 20080115
  Serious: Yes (Death, Other)
  Sender: FDA-Public Use
  Company Number: 2007US-08132

PATIENT
  Age: 3 Year
  Sex: Male

DRUGS (1)
  1. ISOTRETINOIN [Suspect]
     Indication: NEUROBLASTOMA
     Dosage: 100 MG BID
     Dates: start: 20070122, end: 20070618

REACTIONS (3)
  - LOSS OF CONSCIOUSNESS [None]
  - NEOPLASM RECURRENCE [None]
  - OFF LABEL USE [None]
